FAERS Safety Report 7647612-X (Version None)
Quarter: 2011Q3

REPORT INFORMATION
  Report Type: 
  Country: None (occurrence: None)
  Receive Date: 20110801
  Receipt Date: 20110721
  Transmission Date: 20111222
  Serious: Yes (Other)
  Sender: FDA-Public Use
  Company Number: JP-ASTRAZENECA-2011SE39883

PATIENT
  Age: 21093 Day
  Sex: Male
  Weight: 58 kg

DRUGS (2)
  1. ROHIPNOL [Suspect]
     Route: 048
     Dates: start: 20110609
  2. SEROQUEL [Suspect]
     Indication: SCHIZOPHRENIA
     Route: 048
     Dates: start: 20110516

REACTIONS (1)
  - FALL [None]
